FAERS Safety Report 9454850 (Version 5)
Quarter: 2013Q4

REPORT INFORMATION
  Report Type: Spontaneous
  Country: US (occurrence: US)
  Receive Date: 20130813
  Receipt Date: 20131010
  Transmission Date: 20140711
  Serious: No
  Sender: FDA-Public Use
  Company Number: US-009507513-1308USA004570

PATIENT
  Age: 35 Year
  Sex: Female
  Weight: 82.54 kg

DRUGS (4)
  1. IMPLANON [Suspect]
     Indication: CONTRACEPTION
     Dosage: 1 DF, IN LEFT ARM ^THE SAME HOLE^
     Route: 059
     Dates: start: 20100610
  2. IMPLANON [Suspect]
     Dosage: IN LEFT ARM
     Route: 059
     Dates: start: 2007, end: 20100610
  3. ALLEGRA [Concomitant]
  4. ASCORBIC ACID [Concomitant]

REACTIONS (4)
  - Device difficult to use [Not Recovered/Not Resolved]
  - Device dislocation [Not Recovered/Not Resolved]
  - Incorrect drug administration duration [Unknown]
  - Medical device complication [Not Recovered/Not Resolved]
